FAERS Safety Report 24843129 (Version 2)
Quarter: 2025Q1

REPORT INFORMATION
  Report Type: Spontaneous
  Country: FR (occurrence: FR)
  Receive Date: 20250115
  Receipt Date: 20250302
  Transmission Date: 20250408
  Serious: Yes (Hospitalization)
  Sender: SANOFI AVENTIS
  Company Number: None

PATIENT
  Age: 29 Year
  Sex: Male
  Weight: 90 kg

DRUGS (2)
  1. DUPIXENT [Suspect]
     Active Substance: DUPILUMAB
     Indication: Dermatitis atopic
     Dosage: 300 MG, QOW
     Route: 058
     Dates: start: 202409, end: 202409
  2. IVERMECTIN [Concomitant]
     Active Substance: IVERMECTIN

REACTIONS (18)
  - Sarcoid-like reaction [Recovered/Resolved]
  - Pyrexia [Unknown]
  - Inflammation [Unknown]
  - Neck pain [Recovering/Resolving]
  - Decreased appetite [Unknown]
  - General physical health deterioration [Unknown]
  - Sweating fever [Unknown]
  - Oedema peripheral [Unknown]
  - Skin lesion [Unknown]
  - Erythema [Unknown]
  - Inflammation [Unknown]
  - Cough [Unknown]
  - Dyspnoea [Unknown]
  - Sarcoidosis [Recovering/Resolving]
  - Dizziness [Unknown]
  - Myalgia [Unknown]
  - Headache [Not Recovered/Not Resolved]
  - Arthralgia [Unknown]

NARRATIVE: CASE EVENT DATE: 20240101
